FAERS Safety Report 5208022-8 (Version None)
Quarter: 2007Q1

REPORT INFORMATION
  Report Type: 
  Country: None (occurrence: None)
  Receive Date: 20070110
  Receipt Date: 20061229
  Transmission Date: 20070707
  Serious: No
  Sender: FDA-Public Use
  Company Number: E3810-00544-SPO-PT

PATIENT
  Age: 59 Year
  Sex: Female
  Weight: 75 kg

DRUGS (4)
  1. RABEPRAZOLE SODIUM [Suspect]
     Dosage: 20 MG, ORL
     Route: 048
     Dates: start: 20060830, end: 20061101
  2. DOMPERIDONE (DOMPERIDONE) [Suspect]
     Dosage: 10 MG, ORAL
     Route: 048
     Dates: start: 20060830, end: 20061101
  3. INDAPAMIDE [Concomitant]
  4. IBUPROFEN [Concomitant]

REACTIONS (6)
  - ACNE [None]
  - BLISTER [None]
  - MUSCULOSKELETAL DISCOMFORT [None]
  - ORAL MUCOSAL BLISTERING [None]
  - SKIN REACTION [None]
  - TONGUE EXFOLIATION [None]
